FAERS Safety Report 15035531 (Version 1)
Quarter: 2018Q2

REPORT INFORMATION
  Report Type: Spontaneous
  Country: US (occurrence: US)
  Receive Date: 20180530
  Receipt Date: 20180530
  Transmission Date: 20180711
  Serious: No
  Sender: FDA-Public Use
  Company Number: None

PATIENT
  Age: 63 Year
  Sex: Female

DRUGS (1)
  1. BOTOX [Suspect]
     Active Substance: ONABOTULINUMTOXINA
     Dosage: OTHER INTRAMUSCULAR
     Route: 030
     Dates: start: 20170620, end: 20180529

REACTIONS (1)
  - Dry mouth [None]

NARRATIVE: CASE EVENT DATE: 20180529
